FAERS Safety Report 6916425-6 (Version None)
Quarter: 2010Q3

REPORT INFORMATION
  Report Type: 
  Country: None (occurrence: None)
  Receive Date: 20100810
  Receipt Date: 20100727
  Transmission Date: 20110219
  Serious: Yes (Hospitalization)
  Sender: FDA-Public Use
  Company Number: PHFR2010GB01451

PATIENT
  Sex: Female

DRUGS (1)
  1. CLOZARIL [Suspect]
     Indication: SCHIZOPHRENIA
     Dosage: 525 MG/DAY
     Route: 048
     Dates: start: 20031202

REACTIONS (3)
  - ABSCESS DRAINAGE [None]
  - DENTAL OPERATION [None]
  - TOOTH ABSCESS [None]
